FAERS Safety Report 5744005-7 (Version None)
Quarter: 2008Q2

REPORT INFORMATION
  Report Type: 
  Country: None (occurrence: None)
  Receive Date: 20080520
  Receipt Date: 20080515
  Transmission Date: 20081010
  Serious: Yes (Death)
  Sender: FDA-Public Use
  Company Number: JP-NOVOPROD-275355

PATIENT
  Age: 97 Year
  Sex: Female

DRUGS (1)
  1. NOVOSEVEN [Suspect]
     Indication: HAEMORRHAGE
     Dosage: 4.8 MG, UNK
     Route: 042
     Dates: start: 20080424, end: 20080425

REACTIONS (3)
  - DRUG INEFFECTIVE [None]
  - HAEMORRHAGE [None]
  - MULTI-ORGAN FAILURE [None]
